FAERS Safety Report 16913342 (Version 2)
Quarter: 2019Q4

REPORT INFORMATION
  Report Type: Spontaneous
  Country: GB (occurrence: GB)
  Receive Date: 20191014
  Receipt Date: 20191221
  Transmission Date: 20200122
  Serious: Yes (Other)
  Sender: FDA-Public Use
  Company Number: GB-ACCORD-157209

PATIENT
  Age: 4 Year
  Sex: Male

DRUGS (1)
  1. MONTELUKAST [Suspect]
     Active Substance: MONTELUKAST SODIUM
     Indication: ASTHMA

REACTIONS (5)
  - Sleep terror [Recovered/Resolved with Sequelae]
  - Night sweats [Unknown]
  - Anxiety [Unknown]
  - Aggression [Unknown]
  - Psychomotor hyperactivity [Unknown]
